FAERS Safety Report 6649007-4 (Version None)
Quarter: 2010Q1

REPORT INFORMATION
  Report Type: 
  Country: None (occurrence: None)
  Receive Date: 20100324
  Receipt Date: 20100318
  Transmission Date: 20100710
  Serious: Yes (Hospitalization)
  Sender: FDA-Public Use
  Company Number: US-MERCK-1002USA03474

PATIENT

DRUGS (3)
  1. INVANZ [Suspect]
     Route: 065
     Dates: start: 20100209
  2. INVANZ [Suspect]
     Route: 065
  3. LEVAQUIN [Concomitant]
     Route: 065

REACTIONS (2)
  - HEPATIC ENZYME INCREASED [None]
  - HOSPITALISATION [None]
